FAERS Safety Report 23638948 (Version 1)
Quarter: 2024Q1

REPORT INFORMATION
  Report Type: Spontaneous
  Country: ES (occurrence: ES)
  Receive Date: 20240315
  Receipt Date: 20240315
  Transmission Date: 20240410
  Serious: Yes (Other)
  Sender: FDA-Public Use
  Company Number: None

PATIENT
  Age: 75 Year
  Sex: Male
  Weight: 62 kg

DRUGS (9)
  1. SYNJARDY [Suspect]
     Active Substance: EMPAGLIFLOZIN\METFORMIN HYDROCHLORIDE
     Indication: Type 2 diabetes mellitus
     Dates: start: 20200825
  2. EMPAGLIFLOZIN\METFORMIN HYDROCHLORIDE [Suspect]
     Active Substance: EMPAGLIFLOZIN\METFORMIN HYDROCHLORIDE
     Indication: Product used for unknown indication
     Dates: start: 20200720, end: 20200825
  3. SIMVASTATIN [Concomitant]
     Active Substance: SIMVASTATIN
     Indication: Hypercholesterolaemia
     Dates: start: 20190612
  4. PREDNISONA PENSA 10 mg COMPRIMIDOS, 30 comprimidos [Concomitant]
     Indication: Polymyalgia rheumatica
     Dates: start: 20200825
  5. PLAVIX 75 MG COMPRIMIDOS RECUBIERTOS CON PELICULA, 84 comprimidos [Concomitant]
     Indication: Angioplasty
     Dates: start: 20190428
  6. Acetylsalicylic acid 100 mg 30 comprimidos [Concomitant]
     Indication: Peripheral ischaemia
     Dates: start: 20190311
  7. HYDROCHLOROTHIAZIDE [Concomitant]
     Active Substance: HYDROCHLOROTHIAZIDE
     Indication: Hypertension
     Dosage: HALF A TABLET EVERY DAY
     Dates: start: 20190612
  8. Pantoprazol 40 mg 28 comprimidos [Concomitant]
     Indication: Product used for unknown indication
     Dates: start: 20191007
  9. TRESIBA 100 UNIDADES/ML SOLUCION INYECTABLE EN PLUMA PRECARGADA, 5 plu [Concomitant]
     Indication: Product used for unknown indication
     Dates: start: 20191203

REACTIONS (2)
  - Diabetic foot [Recovered/Resolved]
  - Skin ulcer [Recovered/Resolved]

NARRATIVE: CASE EVENT DATE: 20201030
